FAERS Safety Report 16186848 (Version 4)
Quarter: 2019Q2

REPORT INFORMATION
  Report Type: Report from Study
  Country: AU (occurrence: AU)
  Receive Date: 20190411
  Receipt Date: 20190621
  Transmission Date: 20190711
  Serious: Yes (Other)
  Sender: FDA-Public Use
  Company Number: AU-SHIRE-AU201909755

PATIENT

DRUGS (3)
  1. LOPERAMIDE [Concomitant]
     Active Substance: LOPERAMIDE
     Indication: PRODUCT USED FOR UNKNOWN INDICATION
     Dosage: UNK, UNKNOWN
     Route: 065
  2. TEDUGLUTIDE [Suspect]
     Active Substance: TEDUGLUTIDE
     Dosage: UNK, 1X/DAY:QD
     Route: 058
  3. TEDUGLUTIDE [Suspect]
     Active Substance: TEDUGLUTIDE
     Indication: SHORT-BOWEL SYNDROME
     Dosage: UNK UNK, 1X/DAY:QD
     Route: 058
     Dates: start: 20190320

REACTIONS (15)
  - Abdominal distension [Unknown]
  - Abdominal pain [Unknown]
  - Flatulence [Not Recovered/Not Resolved]
  - Obstruction [Not Recovered/Not Resolved]
  - Stoma site haemorrhage [Unknown]
  - Oedema [Unknown]
  - Hypoglycaemia [Recovered/Resolved]
  - Stoma complication [Unknown]
  - Dysphagia [Unknown]
  - International normalised ratio decreased [Unknown]
  - Muscle spasms [Unknown]
  - Stoma site pain [Unknown]
  - Impaired gastric emptying [Unknown]
  - Oedema peripheral [Recovering/Resolving]
  - Fluid overload [Unknown]

NARRATIVE: CASE EVENT DATE: 20190328
